FAERS Safety Report 21493693 (Version 2)
Quarter: 2023Q1

REPORT INFORMATION
  Report Type: Spontaneous
  Country: JP (occurrence: JP)
  Receive Date: 20221021
  Receipt Date: 20230331
  Transmission Date: 20230418
  Serious: Yes (Hospitalization)
  Sender: FDA-Public Use
  Company Number: JP-ELI_LILLY_AND_COMPANY-JP202012001208

PATIENT
  Age: 30 Year
  Sex: Female
  Weight: 64 kg

DRUGS (31)
  1. ADCIRCA [Suspect]
     Active Substance: TADALAFIL
     Indication: Pulmonary arterial hypertension
     Dosage: 40 MG, DAILY
     Route: 048
     Dates: start: 20171014
  2. UPTRAVI [Suspect]
     Active Substance: SELEXIPAG
     Indication: Pulmonary arterial hypertension
     Dosage: 0.2 MG, BID
     Route: 048
     Dates: start: 20171020, end: 20171026
  3. UPTRAVI [Suspect]
     Active Substance: SELEXIPAG
     Dosage: 0.4 MG, BID
     Route: 048
     Dates: start: 20171027, end: 20171102
  4. UPTRAVI [Suspect]
     Active Substance: SELEXIPAG
     Dosage: 0.6 MG, BID
     Route: 048
     Dates: start: 20171103, end: 20171119
  5. UPTRAVI [Suspect]
     Active Substance: SELEXIPAG
     Dosage: 0.8 MG, BID
     Route: 048
     Dates: start: 20171120, end: 20171126
  6. UPTRAVI [Suspect]
     Active Substance: SELEXIPAG
     Dosage: 1 MG, BID
     Route: 048
     Dates: start: 20171127, end: 20171204
  7. UPTRAVI [Suspect]
     Active Substance: SELEXIPAG
     Dosage: 1.1 MG, BID
     Route: 048
     Dates: start: 20171205, end: 20171225
  8. UPTRAVI [Suspect]
     Active Substance: SELEXIPAG
     Dosage: 1.2 MG, BID
     Route: 048
     Dates: start: 20171226, end: 20180128
  9. UPTRAVI [Suspect]
     Active Substance: SELEXIPAG
     Dosage: 1.6 MG, BID
     Route: 048
     Dates: start: 20180129
  10. OPSUMIT [Suspect]
     Active Substance: MACITENTAN
     Indication: Pulmonary arterial hypertension
     Dosage: 10 MG, DAILY
     Route: 048
     Dates: start: 20171014
  11. TORSEMIDE [Suspect]
     Active Substance: TORSEMIDE
     Indication: Prophylaxis
     Dosage: 4 MG, DAILY
     Route: 048
     Dates: start: 20171213, end: 20180130
  12. TORSEMIDE [Suspect]
     Active Substance: TORSEMIDE
     Dosage: 2 MG, DAILY
     Route: 048
     Dates: start: 20180131
  13. NEXIUM [Suspect]
     Active Substance: ESOMEPRAZOLE MAGNESIUM
     Indication: Product used for unknown indication
     Dosage: 20 MG, DAILY
     Route: 048
     Dates: start: 20171218, end: 20180110
  14. SPIRONOLACTONE [Suspect]
     Active Substance: SPIRONOLACTONE
     Indication: Hypokalaemia
     Dosage: 25 MG, DAILY
     Route: 048
     Dates: start: 20171219, end: 20171220
  15. SPIRONOLACTONE [Suspect]
     Active Substance: SPIRONOLACTONE
     Dosage: 50 MG, DAILY
     Route: 048
     Dates: start: 20171221, end: 20180110
  16. SULFAMETHOXAZOLE\TRIMETHOPRIM [Suspect]
     Active Substance: SULFAMETHOXAZOLE\TRIMETHOPRIM
     Indication: Product used for unknown indication
     Dosage: 1 DOSAGE FORM, DAILY
     Route: 048
     Dates: start: 20171225, end: 20180110
  17. ELDECALCITOL [Suspect]
     Active Substance: ELDECALCITOL
     Indication: Product used for unknown indication
     Dosage: 0.75 UG, DAILY
     Route: 048
     Dates: start: 20171225, end: 20180110
  18. MAGNESIUM OXIDE [Concomitant]
     Active Substance: MAGNESIUM OXIDE
     Indication: Product used for unknown indication
     Dosage: UNK, UNKNOWN
     Route: 065
  19. HYALURONATE SODIUM [Concomitant]
     Active Substance: HYALURONATE SODIUM
     Indication: Product used for unknown indication
     Dosage: UNK, UNKNOWN
     Route: 065
  20. WARFARIN POTASSIUM [Concomitant]
     Active Substance: WARFARIN POTASSIUM
     Indication: Prophylaxis
     Dosage: UNK UNK, UNKNOWN
     Route: 065
     Dates: start: 20171020, end: 20200825
  21. WHITE PETROLATUM [Concomitant]
     Active Substance: PETROLATUM
     Indication: Sjogren^s syndrome
     Dosage: UNK, UNKNOWN
     Route: 065
     Dates: start: 20171102
  22. SALIVEHT [Concomitant]
     Indication: Sjogren^s syndrome
     Dosage: UNK, UNKNOWN
     Route: 065
     Dates: start: 20171102
  23. PREDNISOLONE ACETATE [Concomitant]
     Active Substance: PREDNISOLONE ACETATE
     Indication: Sjogren^s syndrome
     Dosage: UNK, UNKNOWN
     Route: 065
     Dates: start: 20171214, end: 20180426
  24. PREDNISOLONE ACETATE [Concomitant]
     Active Substance: PREDNISOLONE ACETATE
     Dosage: UNK, UNKNOWN
     Route: 065
     Dates: start: 20180427, end: 20181220
  25. PREDNISOLONE ACETATE [Concomitant]
     Active Substance: PREDNISOLONE ACETATE
     Dosage: UNK, UNKNOWN
     Route: 065
     Dates: start: 20181221, end: 20200427
  26. PREDNISOLONE [Concomitant]
     Active Substance: PREDNISOLONE
     Indication: Sjogren^s syndrome
     Dosage: UNK
     Dates: start: 20200428
  27. ALFACALCIDOL [Concomitant]
     Active Substance: ALFACALCIDOL
     Indication: Prophylaxis
     Dosage: 1 UG, UNKNOWN
     Route: 065
     Dates: start: 20180117
  28. ATOVAQUONE [Concomitant]
     Active Substance: ATOVAQUONE
     Indication: Product used for unknown indication
     Dosage: 1500 MG, UNKNOWN
     Route: 065
     Dates: start: 20180215, end: 20180327
  29. PRIMPERAN [Concomitant]
     Active Substance: METOCLOPRAMIDE HYDROCHLORIDE
     Indication: Product used for unknown indication
     Dosage: UNK, UNKNOWN
     Route: 065
     Dates: start: 20180115, end: 20180313
  30. MESNA [Concomitant]
     Active Substance: MESNA
     Indication: Sjogren^s syndrome
     Dosage: UNK UNK, UNKNOWN
     Route: 065
     Dates: start: 20180115, end: 20180313
  31. CYCLOPHOSPHAMIDE [Concomitant]
     Active Substance: CYCLOPHOSPHAMIDE
     Indication: Sjogren^s syndrome
     Dosage: UNK, UNKNOWN
     Route: 065
     Dates: start: 20180115, end: 20180313

REACTIONS (8)
  - Anaemia [Recovered/Resolved]
  - Hypokalaemia [Recovered/Resolved]
  - Anaemia [Recovered/Resolved]
  - Decreased appetite [Recovered/Resolved]
  - Pain in jaw [Recovered/Resolved]
  - Iron deficiency anaemia [Recovered/Resolved]
  - Drug eruption [Recovered/Resolved]
  - Headache [Recovered/Resolved]

NARRATIVE: CASE EVENT DATE: 20171103
